FAERS Safety Report 6385286-9 (Version None)
Quarter: 2009Q4

REPORT INFORMATION
  Report Type: 
  Country: None (occurrence: None)
  Receive Date: 20091002
  Receipt Date: 20080820
  Transmission Date: 20100525
  Serious: No
  Sender: FDA-Public Use
  Company Number: BR-ASTRAZENECA-2008UW17270

PATIENT
  Age: 66 Year
  Sex: Female
  Weight: 58 kg

DRUGS (3)
  1. ARIMIDEX [Suspect]
     Indication: BREAST CANCER FEMALE
     Dosage: DAILY
     Route: 048
     Dates: start: 20080201, end: 20080501
  2. DRAMIN [Concomitant]
     Indication: DIZZINESS
     Dosage: DAILY
     Route: 048
     Dates: start: 20030101
  3. RIVOTRIL [Concomitant]
     Indication: LABYRINTHITIS
     Dosage: DAILY
     Route: 048

REACTIONS (7)
  - DECREASED APPETITE [None]
  - GASTRITIS [None]
  - GASTROOESOPHAGEAL REFLUX DISEASE [None]
  - MUSCULAR WEAKNESS [None]
  - NAUSEA [None]
  - OCULAR HYPERAEMIA [None]
  - PAIN IN EXTREMITY [None]
